FAERS Safety Report 19921978 (Version 2)
Quarter: 2025Q1

REPORT INFORMATION
  Report Type: Spontaneous
  Country: DE (occurrence: DE)
  Receive Date: 20211006
  Receipt Date: 20250210
  Transmission Date: 20250408
  Serious: No
  Sender: ALKEM
  Company Number: None

PATIENT
  Age: 70 Year
  Sex: Male
  Weight: 120 kg

DRUGS (10)
  1. EZETIMIBE [Suspect]
     Active Substance: EZETIMIBE
     Indication: Product used for unknown indication
     Dosage: UNK, QD
     Route: 065
  2. PANTOPRAZOLE [Suspect]
     Active Substance: PANTOPRAZOLE
     Indication: Product used for unknown indication
     Dosage: UNK, QD
     Route: 065
  3. TAMSULOSIN HYDROCHLORIDE [Suspect]
     Active Substance: TAMSULOSIN HYDROCHLORIDE
     Indication: Product used for unknown indication
     Dosage: UNK, QD
     Route: 065
  4. BISOPROLOL [Suspect]
     Active Substance: BISOPROLOL
     Indication: Product used for unknown indication
     Dosage: UNK, QD
     Route: 065
  5. LERCANIDIPINE [Suspect]
     Active Substance: LERCANIDIPINE
     Indication: Product used for unknown indication
     Dosage: 1 DOSAGE FORM, QD (EVERY 1 DAY)
     Route: 065
  6. TORSEMIDE [Suspect]
     Active Substance: TORSEMIDE
     Indication: Product used for unknown indication
     Dosage: UNK, QD
     Route: 065
  7. ASS DURA [Concomitant]
     Indication: Product used for unknown indication
     Route: 065
  8. ASS DURA [Concomitant]
     Dosage: UNK, QD
     Route: 065
  9. CANDESARTAN [Concomitant]
     Active Substance: CANDESARTAN
     Indication: Product used for unknown indication
     Dosage: 1 DOSAGE FORM, QD (EVERY 1 DAY)
     Route: 065
  10. ALITRETINOIN [Concomitant]
     Active Substance: ALITRETINOIN
     Indication: Product used for unknown indication
     Dosage: 1 DOSAGE FORM, QD (EVERY 1 DAY)
     Route: 065

REACTIONS (3)
  - Dyspnoea [Unknown]
  - Muscle spasms [Not Recovered/Not Resolved]
  - Blister [Not Recovered/Not Resolved]

NARRATIVE: CASE EVENT DATE: 20200601
